FAERS Safety Report 18229167 (Version 1)
Quarter: 2020Q3

REPORT INFORMATION
  Report Type: Spontaneous
  Country: NL (occurrence: NL)
  Receive Date: 20200903
  Receipt Date: 20200903
  Transmission Date: 20201103
  Serious: Yes (Other)
  Sender: FDA-Public Use
  Company Number: NL-PFIZER INC-2020338718

PATIENT
  Sex: Female
  Weight: 50 kg

DRUGS (1)
  1. ETHINYLESTRADIOL/LEVONORGESTREL [Suspect]
     Active Substance: ETHINYL ESTRADIOL\LEVONORGESTREL
     Indication: DYSMENORRHOEA
     Dosage: 1 DF, 1X/DAY, AT LEAST 3 WEEKS IN A ROW, THEN STOP WEEK
     Dates: start: 201705, end: 20190915

REACTIONS (5)
  - Depressed mood [Recovered/Resolved]
  - Nausea [Recovered/Resolved]
  - Off label use [Unknown]
  - Suicidal ideation [Unknown]
  - Product use in unapproved indication [Unknown]
